FAERS Safety Report 21452758 (Version 1)
Quarter: 2022Q4

REPORT INFORMATION
  Report Type: Spontaneous
  Country: US (occurrence: US)
  Receive Date: 20221013
  Receipt Date: 20221013
  Transmission Date: 20230112
  Serious: Yes (Hospitalization)
  Sender: FDA-Public Use
  Company Number: US-BRISTOL-MYERS SQUIBB COMPANY-2022-117501

PATIENT
  Age: 77 Year
  Sex: Male

DRUGS (1)
  1. POMALYST [Suspect]
     Active Substance: POMALIDOMIDE
     Indication: Plasma cell myeloma
     Dosage: PATIENT TAKES POMALYST 1 MG CAPSULE 1 CAPSULE EVERY 48 HOURS
     Route: 048
     Dates: start: 20210618

REACTIONS (2)
  - Adverse event [Unknown]
  - Off label use [Unknown]
